FAERS Safety Report 9336106 (Version 2)
Quarter: 2013Q3

REPORT INFORMATION
  Report Type: Report from Study
  Country: DE (occurrence: DE)
  Receive Date: 20130607
  Receipt Date: 20130829
  Transmission Date: 20140515
  Serious: Yes (Other)
  Sender: FDA-Public Use
  Company Number: DE-BIOGENIDEC-2011BI029107

PATIENT
  Age: 51 Year
  Sex: Male
  Weight: 101 kg

DRUGS (4)
  1. BG00012 [Suspect]
     Indication: MULTIPLE SCLEROSIS
     Route: 048
     Dates: start: 20101123
  2. CLEXANE [Concomitant]
     Indication: THROMBOSIS PROPHYLAXIS
     Route: 058
     Dates: start: 20110523, end: 201106
  3. IBUPROFEN [Concomitant]
     Indication: PROCEDURAL PAIN
     Route: 048
     Dates: start: 20110524, end: 20110606
  4. CIPROBETA [Concomitant]
     Indication: INFECTION PROPHYLAXIS
     Route: 048
     Dates: start: 20110524, end: 20110608

REACTIONS (1)
  - Adenolymphoma [Not Recovered/Not Resolved]
